FAERS Safety Report 25660108 (Version 1)
Quarter: 2025Q3

REPORT INFORMATION
  Report Type: Spontaneous
  Country: US (occurrence: US)
  Receive Date: 20250808
  Receipt Date: 20250808
  Transmission Date: 20251020
  Serious: No
  Sender: VERTEX
  Company Number: US-VERTEX PHARMACEUTICALS-2025-012862

PATIENT
  Age: 80 Year
  Sex: Male

DRUGS (5)
  1. JOURNAVX [Suspect]
     Active Substance: SUZETRIGINE
     Indication: Pain
     Route: 048
  2. FENOFIBRATE [Concomitant]
     Active Substance: FENOFIBRATE
  3. INSULIN NOS [Concomitant]
     Active Substance: INSULIN NOS
  4. TOPAMAX [Concomitant]
     Active Substance: TOPIRAMATE
     Indication: Pain
  5. IRON [Concomitant]
     Active Substance: IRON

REACTIONS (1)
  - Urticaria [Unknown]
